FAERS Safety Report 13246019 (Version 1)
Quarter: 2017Q1

REPORT INFORMATION
  Report Type: Spontaneous
  Country: RU (occurrence: RU)
  Receive Date: 20170217
  Receipt Date: 20170217
  Transmission Date: 20170428
  Serious: Yes (Hospitalization, Other)
  Sender: FDA-Public Use
  Company Number: RU-BAYER-2017-026663

PATIENT
  Age: 25 Year
  Sex: Female

DRUGS (9)
  1. DUPHASTON [Suspect]
     Active Substance: DYDROGESTERONE
     Dosage: UNK
  2. REFORTAN [Suspect]
     Active Substance: HETASTARCH
     Indication: PLACENTAL INSUFFICIENCY
     Dosage: UNK
  3. ELEVIT PRONATAL [Suspect]
     Active Substance: MINERALS\VITAMINS
     Dosage: UNK
  4. UTROGESTAN [Suspect]
     Active Substance: PROGESTERONE
     Dosage: UNK
  5. CALCEMIN [Suspect]
     Active Substance: BORON\PREVITAMIN D3\ZINC
     Dosage: UNK
  6. ASPIRIN. [Suspect]
     Active Substance: ASPIRIN
     Indication: PLACENTAL INSUFFICIENCY
     Dosage: UNK
  7. FENULS [Suspect]
     Active Substance: ASCORBIC ACID\CALCIUM PANTOTHENATE\FERROUS SULFATE\NIACINAMIDE\PYRIDOXINE\RIBOFLAVIN\THIAMINE
     Dosage: UNK
  8. ACTOVEGIN [Suspect]
     Active Substance: BLOOD, BOVINE
     Indication: PLACENTAL INSUFFICIENCY
  9. MEGLUMINE [Suspect]
     Active Substance: MEGLUMINE
     Indication: PLACENTAL INSUFFICIENCY

REACTIONS (4)
  - Drug-induced liver injury [None]
  - Placental insufficiency [None]
  - Maternal exposure during pregnancy [None]
  - Contraindicated product administered [None]
